FAERS Safety Report 9335811 (Version 3)
Quarter: 2013Q3

REPORT INFORMATION
  Report Type: Report from Study
  Country: BR (occurrence: BR)
  Receive Date: 20130607
  Receipt Date: 20130906
  Transmission Date: 20140515
  Serious: Yes (Life-Threatening, Hospitalization, Disabling, Other)
  Sender: FDA-Public Use
  Company Number: BR-ROCHE-1231669

PATIENT
  Age: 56 Year
  Sex: Female
  Weight: 78.5 kg

DRUGS (12)
  1. XOLAIR [Suspect]
     Indication: ASTHMA
     Dosage: QMO
     Route: 065
     Dates: start: 2012
  2. XOLAIR [Suspect]
     Route: 065
     Dates: start: 20130117
  3. XOLAIR [Suspect]
     Dosage: QMO
     Route: 065
     Dates: start: 201203
  4. SERETIDE [Concomitant]
     Dosage: 50/500MG
     Route: 065
  5. MONTELUKAST SODIUM [Concomitant]
     Dosage: BRAND NAME: MONTELAST
     Route: 065
     Dates: start: 201303
  6. PREDNISOLONE [Concomitant]
     Route: 065
     Dates: start: 201303
  7. LOSARTAN [Concomitant]
     Route: 065
     Dates: start: 201211
  8. HYDROCHLOROTHIAZIDE [Concomitant]
     Route: 065
     Dates: start: 201211
  9. IBUPROFEN [Concomitant]
     Route: 065
  10. MONTELUKAST SODIUM [Concomitant]
     Dosage: BRAND NAME: MONTELAIR
     Route: 065
  11. TEOLONG [Concomitant]
     Route: 065
  12. AMLODIPINE BESYLATE [Concomitant]
     Route: 065
     Dates: start: 20130829

REACTIONS (14)
  - Feeling abnormal [Recovered/Resolved]
  - Viral infection [Recovered/Resolved]
  - Influenza [Recovered/Resolved]
  - Pneumonia [Recovered/Resolved]
  - Gait disturbance [Not Recovered/Not Resolved]
  - Infarction [Not Recovered/Not Resolved]
  - Tracheal obstruction [Not Recovered/Not Resolved]
  - Dyspnoea [Not Recovered/Not Resolved]
  - Back pain [Not Recovered/Not Resolved]
  - Respiratory tract congestion [Not Recovered/Not Resolved]
  - Fatigue [Not Recovered/Not Resolved]
  - Local swelling [Not Recovered/Not Resolved]
  - Pulmonary mass [Not Recovered/Not Resolved]
  - Renal pain [Not Recovered/Not Resolved]
